FAERS Safety Report 10993171 (Version 1)
Quarter: 2015Q2

REPORT INFORMATION
  Report Type: Not Available
  Country: US (occurrence: US)
  Receive Date: 20150407
  Receipt Date: 20150407
  Transmission Date: 20150821
  Serious: No
  Sender: FDA-Public Use
  Company Number: US-LUPIN PHARMACEUTICALS INC.-E2B_00003163

PATIENT
  Sex: Female

DRUGS (1)
  1. CEFDINIR CAPSULES USP 300 MG [Suspect]
     Active Substance: CEFDINIR
     Indication: PHARYNGITIS
     Dates: start: 20150204, end: 20150206

REACTIONS (2)
  - Palpitations [Not Recovered/Not Resolved]
  - Diarrhoea [Not Recovered/Not Resolved]
